FAERS Safety Report 4924664-9 (Version None)
Quarter: 2006Q1

REPORT INFORMATION
  Report Type: 
  Country: None (occurrence: None)
  Receive Date: 20060222
  Receipt Date: 20060130
  Transmission Date: 20060701
  Serious: Yes (Other)
  Sender: FDA-Public Use
  Company Number: 2006BH001875

PATIENT
  Age: 90 Year
  Sex: Male
  Weight: 89.9936 kg

DRUGS (27)
  1. HEPARIN SODIUM [Suspect]
     Indication: ACUTE CORONARY SYNDROME
     Dosage: 900 IU; IV; SEE IMAGE
     Route: 042
     Dates: start: 20051102, end: 20051107
  2. EPTIFIBATIDE (EPTIFIBATIDE) [Suspect]
     Dosage: IV BOL; SEE IMAGE
     Route: 040
     Dates: start: 20051102, end: 20051102
  3. EPTIFIBATIDE (EPTIFIBATIDE) [Suspect]
     Dosage: IV BOL; SEE IMAGE
     Route: 040
     Dates: start: 20051102, end: 20051107
  4. ALDACTONE [Concomitant]
  5. COUMADIN [Concomitant]
  6. LASIX [Concomitant]
  7. MULTI-VITAMINS [Concomitant]
  8. ANCEF [Concomitant]
  9. FLOVENT [Concomitant]
  10. COMBIVENT [Concomitant]
  11. RANITIDINE [Concomitant]
  12. ACETYLSALICYLIC ACID SRT [Concomitant]
  13. COLACE [Concomitant]
  14. HUMULIN R [Concomitant]
  15. CAPTOPRIL [Concomitant]
  16. TRAZODONE [Concomitant]
  17. AMIODARONE [Concomitant]
  18. METOPROLOL [Concomitant]
  19. LOXAPINE [Concomitant]
  20. SENOKOT [Concomitant]
  21. FENTANYL CITRATE [Concomitant]
  22. VERSED [Concomitant]
  23. EPINEPHRINE [Concomitant]
  24. SEPTRA DS [Concomitant]
  25. ALTACE [Concomitant]
  26. CARVEDILOL [Concomitant]
  27. ATORVASTATIN CALCIUM [Concomitant]

REACTIONS (12)
  - AGITATION [None]
  - ANAESTHETIC COMPLICATION NEUROLOGICAL [None]
  - COGNITIVE DISORDER [None]
  - CONFUSIONAL STATE [None]
  - DELIRIUM [None]
  - DEPRESSED LEVEL OF CONSCIOUSNESS [None]
  - DYSPHAGIA [None]
  - HAEMOGLOBIN DECREASED [None]
  - LABILE BLOOD PRESSURE [None]
  - OXYGEN SATURATION DECREASED [None]
  - POST PROCEDURAL COMPLICATION [None]
  - PROCEDURAL HYPOTENSION [None]
